FAERS Safety Report 9742764 (Version 1)
Quarter: 2013Q4

REPORT INFORMATION
  Report Type: Report from Study
  Country: US (occurrence: US)
  Receive Date: 20131210
  Receipt Date: 20131210
  Transmission Date: 20140711
  Serious: Yes (Hospitalization)
  Sender: FDA-Public Use
  Company Number: US-IPSEN BIOPHARMACEUTICALS, INC.-2013-5498

PATIENT
  Age: 57 Year
  Sex: Male

DRUGS (4)
  1. SOMATULINE DEPOT INJECTION (120MG) [Suspect]
     Indication: ACROMEGALY
     Dosage: 120 MG
     Route: 030
     Dates: start: 20130602, end: 201310
  2. ATIVAN [Concomitant]
     Indication: PRODUCT USED FOR UNKNOWN INDICATION
     Route: 065
  3. OXYCODONE [Concomitant]
     Indication: PRODUCT USED FOR UNKNOWN INDICATION
     Route: 065
  4. SUDAFED [Concomitant]
     Indication: PRODUCT USED FOR UNKNOWN INDICATION
     Route: 065

REACTIONS (4)
  - Neurosurgery [Unknown]
  - Back pain [Unknown]
  - Muscle strain [Unknown]
  - Sinusitis [Unknown]
